FAERS Safety Report 8623308-2 (Version None)
Quarter: 2012Q3

REPORT INFORMATION
  Report Type: 
  Country: None (occurrence: None)
  Receive Date: 20120827
  Receipt Date: 20120816
  Transmission Date: 20120928
  Serious: Yes (Other)
  Sender: FDA-Public Use
  Company Number: US-ELI_LILLY_AND_COMPANY-US201208005950

PATIENT
  Sex: Female

DRUGS (4)
  1. INSULIN [Concomitant]
  2. CRESTOR [Concomitant]
  3. CYMBALTA [Suspect]
     Indication: DIABETIC NEUROPATHY
     Dosage: 90 MG, UNK
  4. COZAAR [Concomitant]

REACTIONS (1)
  - RENAL FAILURE CHRONIC [None]
